FAERS Safety Report 9592187 (Version 1)
Quarter: 2013Q4

REPORT INFORMATION
  Report Type: Spontaneous
  Country: US (occurrence: US)
  Receive Date: 20131004
  Receipt Date: 20131004
  Transmission Date: 20140711
  Serious: No
  Sender: FDA-Public Use
  Company Number: US-B.I. PHARMACEUTICALS,INC./RIDGEFIELD-2013-BI-30354BP

PATIENT
  Age: 51 Year
  Sex: Female

DRUGS (5)
  1. COMBIVENT [Suspect]
     Indication: CHRONIC OBSTRUCTIVE PULMONARY DISEASE
     Dosage: STRENGTH: 20 MCG / 100 MCG; DAILY DOSE: 80 MCG/ 400 MCG
     Route: 055
     Dates: start: 201304
  2. SPIRIVA [Concomitant]
     Dosage: 18 MCG
     Route: 055
  3. FLUTICASONE [Concomitant]
     Route: 045
  4. SINGULAIR [Concomitant]
     Dosage: 10 MG
     Route: 048
  5. AZITEROMYCIN [Concomitant]
     Route: 048

REACTIONS (1)
  - Drug ineffective [Not Recovered/Not Resolved]
